FAERS Safety Report 23579253 (Version 1)
Quarter: 2024Q1

REPORT INFORMATION
  Report Type: Spontaneous
  Country: FR (occurrence: FR)
  Receive Date: 20240229
  Receipt Date: 20240229
  Transmission Date: 20240410
  Serious: Yes (Other)
  Sender: FDA-Public Use
  Company Number: None

PATIENT

DRUGS (4)
  1. IBUPROFEN [Suspect]
     Active Substance: IBUPROFEN
     Indication: Toothache
     Dosage: 2400 MG, TOTAL (6 CP OVER 8 P.M)
     Route: 048
     Dates: start: 20231211, end: 20231211
  2. IBUPROFEN [Suspect]
     Active Substance: IBUPROFEN
     Indication: Incorrect dose administered
  3. ACETAMINOPHEN [Suspect]
     Active Substance: ACETAMINOPHEN
     Indication: Toothache
     Dosage: 6 G TOTAL, (6 G IN 20 HOURS)
     Route: 048
     Dates: start: 20231211, end: 20231211
  4. ACETAMINOPHEN [Suspect]
     Active Substance: ACETAMINOPHEN
     Indication: Incorrect dose administered

REACTIONS (2)
  - Vomiting [Recovered/Resolved]
  - Incorrect dose administered [Recovered/Resolved]

NARRATIVE: CASE EVENT DATE: 20231211
